FAERS Safety Report 13246904 (Version 3)
Quarter: 2017Q3

REPORT INFORMATION
  Report Type: Spontaneous
  Country: US (occurrence: US)
  Receive Date: 20170217
  Receipt Date: 20170706
  Transmission Date: 20171127
  Serious: Yes (Other)
  Sender: FDA-Public Use
  Company Number: US-AMGEN-USASP2017022009

PATIENT
  Age: 46 Year
  Sex: Female

DRUGS (2)
  1. ENBREL [Suspect]
     Active Substance: ETANERCEPT
     Indication: RHEUMATOID ARTHRITIS
     Dosage: 50 MG, QWK
     Route: 065
     Dates: end: 201706
  2. ENBREL [Suspect]
     Active Substance: ETANERCEPT
     Dosage: 50 MG, QWK
     Route: 065
     Dates: start: 201706

REACTIONS (14)
  - Rheumatoid arthritis [Unknown]
  - Hypoaesthesia oral [Unknown]
  - Limb discomfort [Unknown]
  - Dizziness [Unknown]
  - Product storage error [Unknown]
  - Injection site reaction [Unknown]
  - Hypoaesthesia [Unknown]
  - Drug dose omission [Unknown]
  - Sinusitis [Unknown]
  - Laboratory test abnormal [Unknown]
  - Arthropod bite [Unknown]
  - Malaise [Unknown]
  - Dyspnoea [Not Recovered/Not Resolved]
  - Cough [Unknown]

NARRATIVE: CASE EVENT DATE: 201702
